FAERS Safety Report 9926425 (Version 1)
Quarter: 2014Q1

REPORT INFORMATION
  Report Type: Spontaneous
  Country: US (occurrence: US)
  Receive Date: 20140226
  Receipt Date: 20140226
  Transmission Date: 20141002
  Serious: No
  Sender: FDA-Public Use
  Company Number: US-AMGEN-USASP2013069366

PATIENT
  Age: 55 Year
  Sex: Female
  Weight: 95 kg

DRUGS (8)
  1. ENBREL [Suspect]
     Indication: PRODUCT USED FOR UNKNOWN INDICATION
     Dosage: 50 MG/ML, QWK
     Route: 058
  2. LOVASTATIN [Concomitant]
     Dosage: 20 MG, UNK
  3. AMLODIPINE [Concomitant]
     Dosage: 5 MG, UNK
  4. SULFASALAZIN [Concomitant]
     Dosage: 500 MG, UNK
  5. CALCIUM [Concomitant]
     Dosage: 500 UNK, UNK
  6. FOLIC ACID [Concomitant]
     Dosage: UNK
  7. ASA [Concomitant]
     Dosage: 81 MG, UNK
  8. XANAX [Concomitant]
     Dosage: 1 G, UNK

REACTIONS (1)
  - Pain [Unknown]
